FAERS Safety Report 23636010 (Version 1)
Quarter: 2024Q1

REPORT INFORMATION
  Report Type: Spontaneous
  Country: HR (occurrence: HR)
  Receive Date: 20240315
  Receipt Date: 20240315
  Transmission Date: 20240410
  Serious: Yes (Other)
  Sender: FDA-Public Use
  Company Number: None

PATIENT

DRUGS (4)
  1. WELLBUTRIN [Suspect]
     Active Substance: BUPROPION HYDROCHLORIDE
     Indication: Product used for unknown indication
     Dosage: 4500 MG, QD(30 TBL OF WELLBUTRIN OF 150MG)
     Route: 048
     Dates: start: 20240102, end: 20240102
  2. ATENOLOL [Suspect]
     Active Substance: ATENOLOL
     Indication: Product used for unknown indication
     Dosage: 1500 MG, QD(30 TBL ORMITOLA OD 50MG)
     Route: 048
     Dates: start: 20240102, end: 20240102
  3. NORMABEL [Suspect]
     Active Substance: DIAZEPAM
     Indication: Product used for unknown indication
     Dosage: 600 MG, QD(120 TBL OF NORMABEL OF 5MG)
     Route: 048
     Dates: start: 20240102, end: 20240102
  4. ZOLPIDEM TARTRATE [Suspect]
     Active Substance: ZOLPIDEM TARTRATE
     Indication: Product used for unknown indication
     Dosage: 200 MG, QD(20 TBL LUNATE 10MG)
     Route: 048
     Dates: start: 20240102, end: 20240102

REACTIONS (3)
  - Intentional overdose [Unknown]
  - Somnolence [Unknown]
  - Suicide attempt [Unknown]

NARRATIVE: CASE EVENT DATE: 20240102
